FAERS Safety Report 14293019 (Version 1)
Quarter: 2017Q4

REPORT INFORMATION
  Report Type: Spontaneous
  Country: US (occurrence: US)
  Receive Date: 20171215
  Receipt Date: 20171215
  Transmission Date: 20180321
  Serious: No
  Sender: FDA-Public Use
  Company Number: US-ELI_LILLY_AND_COMPANY-US201712005633

PATIENT
  Sex: Female

DRUGS (1)
  1. CYMBALTA [Suspect]
     Active Substance: DULOXETINE HYDROCHLORIDE
     Indication: ANXIETY
     Dosage: 60 MG, BID
     Route: 048
     Dates: start: 201412

REACTIONS (6)
  - Back pain [Unknown]
  - Fall [Unknown]
  - Sciatica [Unknown]
  - Hypoacusis [Unknown]
  - Sleep disorder due to a general medical condition [Unknown]
  - Epistaxis [Unknown]
